FAERS Safety Report 4877517-9 (Version None)
Quarter: 2006Q1

REPORT INFORMATION
  Report Type: 
  Country: None (occurrence: None)
  Receive Date: 20060109
  Receipt Date: 20060103
  Transmission Date: 20060701
  Serious: Yes (Life-Threatening)
  Sender: FDA-Public Use
  Company Number: 2006ADE/DICLO-001

PATIENT
  Age: 32 Year
  Sex: Male

DRUGS (1)
  1. DICLOFENAC-RATIOPHARM 50 TABLETTEN (DICLOFENAC) [Suspect]
     Indication: ANKYLOSING SPONDYLITIS
     Dosage: ORAL
     Route: 048

REACTIONS (6)
  - ANAPHYLACTIC REACTION [None]
  - ANGIONEUROTIC OEDEMA [None]
  - DRUG HYPERSENSITIVITY [None]
  - HYPOTENSION [None]
  - TACHYCARDIA [None]
  - URTICARIA [None]
